FAERS Safety Report 9721570 (Version 1)
Quarter: 2013Q4

REPORT INFORMATION
  Report Type: Spontaneous
  Country: CH (occurrence: CH)
  Receive Date: 20131130
  Receipt Date: 20131130
  Transmission Date: 20140711
  Serious: Yes (Other)
  Sender: FDA-Public Use
  Company Number: CH-009507513-1311CHE012686

PATIENT
  Age: 38 Year
  Sex: Female

DRUGS (6)
  1. MERCILON [Suspect]
     Indication: CONTRACEPTION
     Dosage: (STRENGTH: 0.15/0.02MG) 21 PER 1 MONTH
     Route: 048
     Dates: start: 20130725, end: 20131008
  2. CLARITHROMYCIN [Suspect]
     Indication: GASTROENTERITIS
     Dosage: 500 MG, BID
     Route: 048
     Dates: start: 20130909, end: 20130921
  3. OMEPRAZOLE [Suspect]
     Indication: GASTROENTERITIS
     Dosage: 40 MG, QD
     Route: 048
     Dates: start: 20130909, end: 20130921
  4. SPASMO-CANULASE [Suspect]
     Indication: GASTROENTERITIS
     Dosage: AS NECESSARY
     Route: 048
     Dates: start: 20130909, end: 20130921
  5. METRONIDAZOLE [Concomitant]
     Indication: GASTROENTERITIS
     Dosage: 500 MG, BID
     Route: 048
     Dates: start: 20130909, end: 20130921
  6. AMOXICILLIN [Concomitant]
     Indication: GASTROENTERITIS
     Dosage: 500 MG, BID
     Route: 048
     Dates: start: 20130909, end: 20130914

REACTIONS (3)
  - Exposure during pregnancy [Unknown]
  - Drug ineffective [Not Recovered/Not Resolved]
  - Unintended pregnancy [Unknown]
